FAERS Safety Report 8620447-7 (Version None)
Quarter: 2012Q3

REPORT INFORMATION
  Report Type: 
  Country: None (occurrence: None)
  Receive Date: 20120820
  Receipt Date: 20120820
  Transmission Date: 20120928
  Serious: No
  Sender: FDA-Public Use
  Company Number: None

PATIENT
  Sex: Male
  Weight: 79.3795 kg

DRUGS (1)
  1. CLONIDINE [Suspect]
     Indication: TOURETTE'S DISORDER
     Dosage: 0.1 1/2 MG AM, PM, HS ORAL
     Route: 048
     Dates: start: 19800101, end: 19900101

REACTIONS (2)
  - DRUG INEFFECTIVE [None]
  - TREATMENT FAILURE [None]
